FAERS Safety Report 9795269 (Version 1)
Quarter: 2014Q1

REPORT INFORMATION
  Report Type: Spontaneous
  Country: US (occurrence: US)
  Receive Date: 20140103
  Receipt Date: 20140103
  Transmission Date: 20141002
  Serious: Yes (Death)
  Sender: FDA-Public Use
  Company Number: US-ROCHE-1328659

PATIENT
  Sex: Female

DRUGS (3)
  1. XELODA [Suspect]
     Indication: BREAST CANCER
     Dosage: BID X 7 DAYS OFF 7
     Route: 048
     Dates: start: 20130628
  2. COMBIVENT [Concomitant]
  3. PROCHLORPERAZINE [Concomitant]
     Route: 065

REACTIONS (1)
  - Death [Fatal]
